FAERS Safety Report 18898970 (Version 1)
Quarter: 2021Q1

REPORT INFORMATION
  Report Type: Spontaneous
  Country: US (occurrence: US)
  Receive Date: 20210216
  Receipt Date: 20210216
  Transmission Date: 20210420
  Serious: Yes (Other)
  Sender: FDA-Public Use
  Company Number: None

PATIENT
  Age: 41 Year
  Sex: Female
  Weight: 83.9 kg

DRUGS (1)
  1. BAMLANIVIMAB. [Suspect]
     Active Substance: BAMLANIVIMAB
     Indication: COVID-19
     Dosage: ?          OTHER FREQUENCY:ONCE;?
     Route: 041
     Dates: start: 20210215, end: 20210215

REACTIONS (7)
  - Tachypnoea [None]
  - Epistaxis [None]
  - Infusion related reaction [None]
  - Chills [None]
  - Fatigue [None]
  - Dyspnoea [None]
  - Haemoptysis [None]

NARRATIVE: CASE EVENT DATE: 20210215
